FAERS Safety Report 5213655-9 (Version None)
Quarter: 2007Q1

REPORT INFORMATION
  Report Type: 
  Country: None (occurrence: None)
  Receive Date: 20070119
  Receipt Date: 20070108
  Transmission Date: 20070707
  Serious: Yes (Death, Hospitalization, Other)
  Sender: FDA-Public Use
  Company Number: US-PFIZER INC-2007003801

PATIENT
  Sex: Male

DRUGS (5)
  1. NEURONTIN [Suspect]
  2. REZULIN [Suspect]
     Indication: DIABETES MELLITUS
  3. ACTOS [Concomitant]
  4. GLUCOPHAGE [Concomitant]
  5. ANTIHYPERTENSIVES [Concomitant]

REACTIONS (4)
  - BLOOD GLUCOSE INCREASED [None]
  - CARBON DIOXIDE INCREASED [None]
  - CHRONIC OBSTRUCTIVE PULMONARY DISEASE [None]
  - EPISTAXIS [None]
